FAERS Safety Report 6357053-3 (Version None)
Quarter: 2009Q3

REPORT INFORMATION
  Report Type: 
  Country: None (occurrence: None)
  Receive Date: 20090915
  Receipt Date: 20090910
  Transmission Date: 20100115
  Serious: Yes (Death)
  Sender: FDA-Public Use
  Company Number: US-GENENTECH-283783

PATIENT
  Age: 79 Year
  Sex: Female
  Weight: 67 kg

DRUGS (12)
  1. BEVACIZUMAB [Suspect]
     Indication: ENDOMETRIAL CANCER
     Dosage: 10 MG/KG, DAYS 1+15
     Route: 042
     Dates: start: 20090122, end: 20090430
  2. TEMSIROLIMUS [Suspect]
     Indication: NON-SMALL CELL LUNG CANCER
     Dosage: 25 MG, 1/WEEK
     Route: 042
     Dates: start: 20090122, end: 20090430
  3. TYLENOL (CAPLET) [Concomitant]
     Indication: PAIN
  4. HEPARIN [Concomitant]
     Indication: DRUG USE FOR UNKNOWN INDICATION
  5. FOSAMAX [Concomitant]
     Indication: DRUG USE FOR UNKNOWN INDICATION
  6. WARFARIN SODIUM [Concomitant]
     Indication: DRUG USE FOR UNKNOWN INDICATION
  7. METOPROLOL TARTRATE [Concomitant]
     Indication: DRUG USE FOR UNKNOWN INDICATION
  8. LISINOPRIL [Concomitant]
     Indication: DRUG USE FOR UNKNOWN INDICATION
  9. HYDROCHLOROTHIAZIDE [Concomitant]
     Indication: DRUG USE FOR UNKNOWN INDICATION
  10. GABAPENTIN [Concomitant]
     Indication: DRUG USE FOR UNKNOWN INDICATION
  11. VITAMIN B6 [Concomitant]
     Indication: DRUG USE FOR UNKNOWN INDICATION
  12. L-LYSINE [Concomitant]
     Indication: DRUG USE FOR UNKNOWN INDICATION

REACTIONS (5)
  - FACIAL PAIN [None]
  - HEADACHE [None]
  - PERICARDIAL EFFUSION [None]
  - SUDDEN DEATH [None]
  - VISION BLURRED [None]
